FAERS Safety Report 13877797 (Version 10)
Quarter: 2019Q3

REPORT INFORMATION
  Report Type: Report from Study
  Country: CA (occurrence: CA)
  Receive Date: 20170817
  Receipt Date: 20190925
  Transmission Date: 20191004
  Serious: Yes (Hospitalization, Other)
  Sender: FDA-Public Use
  Company Number: CA-BRISTOL-MYERS SQUIBB COMPANY-BMS-2017-072213

PATIENT
  Age: 79 Year
  Sex: Male

DRUGS (1)
  1. ABATACEPT [Suspect]
     Active Substance: ABATACEPT
     Indication: RHEUMATOID ARTHRITIS
     Dosage: 750 MG, Q4WK
     Route: 042
     Dates: start: 20080407

REACTIONS (17)
  - Muscular weakness [Not Recovered/Not Resolved]
  - Sciatica [Unknown]
  - Pneumonia [Recovered/Resolved]
  - Fatigue [Unknown]
  - Pleural effusion [Unknown]
  - Influenza [Recovering/Resolving]
  - Musculoskeletal pain [Unknown]
  - Oedema peripheral [Recovering/Resolving]
  - Oxygen saturation decreased [Recovered/Resolved]
  - Depression [Unknown]
  - Gait disturbance [Unknown]
  - Fall [Recovered/Resolved]
  - Bronchitis viral [Recovered/Resolved]
  - Dyspnoea [Unknown]
  - Arthralgia [Unknown]
  - Pain in extremity [Unknown]
  - Tendonitis [Unknown]

NARRATIVE: CASE EVENT DATE: 201909
